FAERS Safety Report 8246996-1 (Version None)
Quarter: 2012Q1

REPORT INFORMATION
  Report Type: 
  Country: None (occurrence: None)
  Receive Date: 20120330
  Receipt Date: 20120330
  Transmission Date: 20120608
  Serious: Yes (Life-Threatening)
  Sender: FDA-Public Use
  Company Number: None

PATIENT
  Age: 62 Year
  Sex: Female
  Weight: 72.574 kg

DRUGS (3)
  1. LYRICA [Suspect]
     Indication: FIBROMYALGIA
     Dosage: 75MG
     Route: 048
     Dates: start: 20120228, end: 20120320
  2. LORAZEPAM [Concomitant]
  3. LYRICA [Concomitant]
     Dosage: 50MG
     Route: 048
     Dates: start: 20120320, end: 20120328

REACTIONS (3)
  - APATHY [None]
  - SUICIDAL IDEATION [None]
  - DEPRESSION [None]
